FAERS Safety Report 7097113-5 (Version None)
Quarter: 2010Q4

REPORT INFORMATION
  Report Type: 
  Country: None (occurrence: None)
  Receive Date: 20101025
  Receipt Date: 20101021
  Transmission Date: 20110411
  Serious: Yes (Hospitalization)
  Sender: FDA-Public Use
  Company Number: 2010PROUSA00065

PATIENT
  Age: 58 Year
  Sex: Male
  Weight: 77.4 kg

DRUGS (7)
  1. PROVENGE [Suspect]
     Indication: PROSTATE CANCER METASTATIC
     Dosage: 250 ML, SINGLE, INTRAVENOUS
     Route: 042
     Dates: start: 20100916, end: 20100916
  2. FENTANYL-100 [Concomitant]
  3. DILAUDID [Concomitant]
  4. ZOLOFT [Concomitant]
  5. TRAZODONE HCL [Concomitant]
  6. XANAX [Concomitant]
  7. PRILOSEC [Concomitant]

REACTIONS (5)
  - DISORIENTATION [None]
  - FAILURE TO THRIVE [None]
  - FATIGUE [None]
  - HOSPICE CARE [None]
  - PAIN [None]
